FAERS Safety Report 8919030 (Version 2)
Quarter: 2012Q4

REPORT INFORMATION
  Report Type: 
  Country: US (occurrence: US)
  Receive Date: 20121121
  Receipt Date: 20121221
  Transmission Date: 20130627
  Serious: No
  Sender: FDA-Public Use
  Company Number: US-009507513-1211USA007339

PATIENT
  Sex: Male

DRUGS (5)
  1. VICTRELIS [Suspect]
     Indication: HEPATITIS C
     Dosage: 800 mg, tid
     Route: 048
     Dates: start: 201204
  2. RIBASPHERE [Suspect]
     Dosage: UNK
  3. PEGASYS [Suspect]
     Dosage: UNK
  4. NEUPOGEN [Concomitant]
     Dosage: UNK
  5. PROCRIT [Concomitant]
     Dosage: UNK

REACTIONS (2)
  - Full blood count decreased [Not Recovered/Not Resolved]
  - Fatigue [Not Recovered/Not Resolved]
